FAERS Safety Report 17925174 (Version 2)
Quarter: 2020Q2

REPORT INFORMATION
  Report Type: Spontaneous
  Country: US (occurrence: US)
  Receive Date: 20200622
  Receipt Date: 20200629
  Transmission Date: 20200714
  Serious: No
  Sender: FDA-Public Use
  Company Number: US-VERTEX PHARMACEUTICALS-2020-012965

PATIENT
  Age: 50 Year
  Sex: Female
  Weight: 83 kg

DRUGS (12)
  1. LEXAPRO [Concomitant]
     Active Substance: ESCITALOPRAM OXALATE
     Dosage: 10MG, FREQUENCY UNKNOWN
  2. PREDNISONE. [Concomitant]
     Active Substance: PREDNISONE
     Dosage: 10MG, FREQUENCY UNKNOWN
  3. PULMOZYME [Concomitant]
     Active Substance: DORNASE ALFA
     Dosage: 1MG/ML, FREQUENCY UNKNOWN
  4. COLISTIMETHATE SODIUM. [Concomitant]
     Active Substance: COLISTIMETHATE SODIUM
  5. HUMALOG [Concomitant]
     Active Substance: INSULIN LISPRO
     Dosage: 100UNITS/ML CATRIDGE
  6. TRESIBA [Concomitant]
     Active Substance: INSULIN DEGLUDEC
     Dosage: UNK
  7. CAYSTON [Concomitant]
     Active Substance: AZTREONAM
     Dosage: 75MG, TID
  8. NORCO [Concomitant]
     Active Substance: ACETAMINOPHEN\HYDROCODONE BITARTRATE
     Dosage: 7.5MG/325MG, FREQUENCY UNKNOWN
  9. VITAMIN E [Concomitant]
     Active Substance: .ALPHA.-TOCOPHEROL
     Dosage: 200 UNITS, FREQUENCY UNKNWN
  10. PULMICORT TURBUHALER [Concomitant]
     Active Substance: BUDESONIDE
     Dosage: 0.25ML/2ML AMPOULE, FREQUENCY UNKNOWN
     Route: 055
  11. TRIKAFTA [Suspect]
     Active Substance: ELEXACAFTOR\IVACAFTOR\TEZACAFTOR
     Indication: CYSTIC FIBROSIS
     Dosage: 2 TABLETS(100MG ELEXACAFTOR/50MG TEZACAFTOR/75MG IVACAFTOR) AM AND 1 TABLET(150MG IVACAFTOR) PM
     Route: 048
     Dates: start: 20191113
  12. FAMOTIDINE. [Concomitant]
     Active Substance: FAMOTIDINE
     Dosage: 10MG, FREQUENCY UNKNOWN

REACTIONS (2)
  - Weight increased [Not Recovered/Not Resolved]
  - Infective pulmonary exacerbation of cystic fibrosis [Unknown]

NARRATIVE: CASE EVENT DATE: 20191113
